FAERS Safety Report 5341801-5 (Version None)
Quarter: 2007Q2

REPORT INFORMATION
  Report Type: 
  Country: None (occurrence: None)
  Receive Date: 20070601
  Receipt Date: 20070521
  Transmission Date: 20071010
  Serious: Yes (Hospitalization, Other)
  Sender: FDA-Public Use
  Company Number: GB-JNJFOC-20070303221

PATIENT
  Sex: Male
  Weight: 32.7 kg

DRUGS (7)
  1. REMICADE [Suspect]
     Indication: CROHN'S DISEASE
     Route: 042
  2. AZATHIOPRINE [Concomitant]
     Indication: CROHN'S DISEASE
     Route: 048
  3. OMEPRAZOLE [Concomitant]
  4. HYDROCORTISONE [Concomitant]
     Indication: CROHN'S DISEASE
     Route: 042
  5. TPN [Concomitant]
     Route: 042
  6. POTASSIUM ACETATE [Concomitant]
  7. SULPHATE [Concomitant]

REACTIONS (1)
  - REVERSIBLE POSTERIOR LEUKOENCEPHALOPATHY SYNDROME [None]
